FAERS Safety Report 18393986 (Version 1)
Quarter: 2020Q4

REPORT INFORMATION
  Report Type: Spontaneous
  Country: GB (occurrence: GB)
  Receive Date: 20201016
  Receipt Date: 20201016
  Transmission Date: 20210114
  Serious: Yes (Disabling, Other)
  Sender: FDA-Public Use
  Company Number: GB-MYLANLABS-2020M1087014

PATIENT
  Age: 34 Year
  Sex: Male
  Weight: 63.5 kg

DRUGS (1)
  1. ISOTRETINOIN. [Suspect]
     Active Substance: ISOTRETINOIN
     Indication: ACNE
     Dosage: UNK, 20-40ML
     Route: 048
     Dates: start: 20200222, end: 20200815

REACTIONS (3)
  - Erectile dysfunction [Not Recovered/Not Resolved]
  - Withdrawal syndrome [Unknown]
  - Suicidal ideation [Unknown]

NARRATIVE: CASE EVENT DATE: 20200820
